FAERS Safety Report 9923442 (Version 2)
Quarter: 2014Q2

REPORT INFORMATION
  Report Type: Spontaneous
  Country: JP (occurrence: JP)
  Receive Date: 20140225
  Receipt Date: 20140409
  Transmission Date: 20141212
  Serious: Yes (Death)
  Sender: FDA-Public Use
  Company Number: JP-BAXTER-2014BAX008518

PATIENT
  Age: 88 Year
  Sex: Male
  Weight: 50 kg

DRUGS (2)
  1. FEIBA FOR INJECTION 500 [Suspect]
     Indication: HAEMOSTASIS
     Route: 042
     Dates: start: 20140206, end: 20140213
  2. FEIBA FOR INJECTION 500 [Suspect]
     Indication: ACQUIRED HAEMOPHILIA

REACTIONS (2)
  - Condition aggravated [Fatal]
  - Cerebral haemorrhage [Fatal]
